FAERS Safety Report 9894608 (Version 1)
Quarter: 2014Q1

REPORT INFORMATION
  Report Type: Spontaneous
  Country: GB (occurrence: GB)
  Receive Date: 20140213
  Receipt Date: 20140213
  Transmission Date: 20141002
  Serious: Yes (Other)
  Sender: FDA-Public Use
  Company Number: GB-TEVA-461767ISR

PATIENT
  Age: 46 Year
  Sex: Female

DRUGS (1)
  1. AMITRIPTYLINE [Suspect]
     Indication: MIGRAINE
     Dosage: 10 MILLIGRAM DAILY;
     Route: 048
     Dates: start: 20130501, end: 20130525

REACTIONS (6)
  - Hallucination [Recovered/Resolved]
  - Hypoaesthesia [Recovered/Resolved]
  - Panic attack [Recovered/Resolved]
  - Grip strength decreased [Not Recovered/Not Resolved]
  - Hot flush [Not Recovered/Not Resolved]
  - Anxiety [Not Recovered/Not Resolved]
